FAERS Safety Report 7418607-6 (Version None)
Quarter: 2011Q2

REPORT INFORMATION
  Report Type: 
  Country: None (occurrence: None)
  Receive Date: 20110415
  Receipt Date: 20101027
  Transmission Date: 20111010
  Serious: Yes (Hospitalization)
  Sender: FDA-Public Use
  Company Number: US-BAYER-201029785NA

PATIENT
  Age: 25 Year
  Sex: Female
  Weight: 86 kg

DRUGS (11)
  1. OCELLA [Suspect]
     Indication: OVARIAN CYST
     Dosage: UNK
     Dates: start: 20030901, end: 20040801
  2. LEVOXYL [Concomitant]
     Indication: THYROID DISORDER
     Dosage: UNK
     Dates: start: 20070101
  3. VIRAL VACCINES [Concomitant]
     Dosage: UNK
     Dates: start: 20090520
  4. VITAMIN B12 NOS [Concomitant]
     Dosage: UNK
     Dates: start: 20080101
  5. ASCORBIC ACID [Concomitant]
  6. ZITHROMAX [Concomitant]
  7. YASMIN [Suspect]
     Indication: OVARIAN CYST
     Dosage: UNK
     Dates: start: 20030901, end: 20040801
  8. YASMIN [Suspect]
     Dosage: UNK
     Dates: start: 20050101, end: 20080801
  9. TYLENOL W/ CODEINE NO. 3 [Concomitant]
  10. VIRAL VACCINES [Concomitant]
     Dosage: UNK
     Dates: start: 20081110
  11. OCELLA [Suspect]
     Dosage: UNK
     Dates: start: 20050101, end: 20080801

REACTIONS (3)
  - CHOLELITHIASIS [None]
  - GALLBLADDER DISORDER [None]
  - CHOLECYSTITIS [None]
